FAERS Safety Report 21537135 (Version 1)
Quarter: 2022Q4

REPORT INFORMATION
  Report Type: Spontaneous
  Country: US (occurrence: None)
  Receive Date: 20221101
  Receipt Date: 20221101
  Transmission Date: 20230113
  Serious: No
  Sender: FDA-Public Use
  Company Number: None

PATIENT
  Age: 70 Year
  Sex: Female
  Weight: 83.25 kg

DRUGS (17)
  1. PAXLOVID [Suspect]
     Active Substance: NIRMATRELVIR\RITONAVIR
     Indication: COVID-19
     Route: 048
     Dates: start: 20220825, end: 20220826
  2. LEVOTHYROXINE [Concomitant]
     Active Substance: LEVOTHYROXINE
  3. VERAPAMIL [Concomitant]
     Active Substance: VERAPAMIL HYDROCHLORIDE
  4. PROPRANOLOL [Concomitant]
     Active Substance: PROPRANOLOL HYDROCHLORIDE
  5. ALENDRONATE [Concomitant]
     Active Substance: ALENDRONATE SODIUM
  6. RIZATRIPTAN [Concomitant]
     Active Substance: RIZATRIPTAN
  7. ONDANSETRON [Concomitant]
     Active Substance: ONDANSETRON
  8. PHENERGAN [Concomitant]
     Active Substance: PROMETHAZINE HYDROCHLORIDE
  9. Botox injections (migraine) [Concomitant]
  10. BIOTIN [Concomitant]
     Active Substance: BIOTIN
  11. ASPIRIN [Concomitant]
     Active Substance: ASPIRIN
  12. VITAMIN D [Concomitant]
     Active Substance: VITAMIN D NOS
  13. PEPCID COMPLETE [Concomitant]
     Active Substance: CALCIUM CARBONATE\FAMOTIDINE\MAGNESIUM HYDROXIDE
  14. COLLAGEN [Concomitant]
     Active Substance: COLLAGEN
  15. VITAMINS [Concomitant]
     Active Substance: VITAMINS
  16. CLARITIN [Concomitant]
     Active Substance: LORATADINE
  17. TYLENOL [Concomitant]
     Active Substance: ACETAMINOPHEN

REACTIONS (5)
  - Swollen tongue [None]
  - Tongue erythema [None]
  - Glossodynia [None]
  - Tongue blistering [None]
  - Dysgeusia [None]

NARRATIVE: CASE EVENT DATE: 20220825
